FAERS Safety Report 11693310 (Version 1)
Quarter: 2015Q4

REPORT INFORMATION
  Report Type: Spontaneous
  Country: US (occurrence: None)
  Receive Date: 20151102
  Receipt Date: 20151102
  Transmission Date: 20160304
  Serious: Yes (Other)
  Sender: FDA-Public Use
  Company Number: None

PATIENT
  Age: 73 Year
  Sex: Female
  Weight: 54.43 kg

DRUGS (14)
  1. LEVAQUIN [Suspect]
     Active Substance: LEVOFLOXACIN
     Indication: OTITIS MEDIA
     Dosage: 1 PILL EVERY DAY ONCE DAILY TAKEN BY MOUTH
     Route: 048
     Dates: start: 20151022, end: 20151026
  2. PROTONIX [Concomitant]
     Active Substance: PANTOPRAZOLE SODIUM
  3. TUMS [Concomitant]
     Active Substance: CALCIUM CARBONATE
  4. NORVASC [Concomitant]
     Active Substance: AMLODIPINE BESYLATE
  5. LEVAQUIN [Suspect]
     Active Substance: LEVOFLOXACIN
     Indication: SINUSITIS
     Dosage: 1 PILL EVERY DAY ONCE DAILY TAKEN BY MOUTH
     Route: 048
     Dates: start: 20151022, end: 20151026
  6. TYLENOL [Concomitant]
     Active Substance: ACETAMINOPHEN
  7. HCTZ [Concomitant]
     Active Substance: HYDROCHLOROTHIAZIDE
  8. SERTRALINE [Concomitant]
     Active Substance: SERTRALINE HYDROCHLORIDE
  9. TOMOLOL OPTHALMIC SOLUTION [Concomitant]
  10. VITAMIN D3 [Concomitant]
     Active Substance: CHOLECALCIFEROL
  11. ALLEGRA [Concomitant]
     Active Substance: FEXOFENADINE HYDROCHLORIDE
  12. FLUCTICASONE NASAL SPRAY [Concomitant]
  13. CALCIUM TABLETS [Concomitant]
  14. MAALOX ANTACID [Concomitant]
     Active Substance: ALUMINUM HYDROXIDE\DIMETHICONE\MAGNESIUM HYDROXIDE

REACTIONS (3)
  - Gait disturbance [None]
  - Pain in extremity [None]
  - Urticaria [None]

NARRATIVE: CASE EVENT DATE: 20151024
